FAERS Safety Report 5119748-9 (Version None)
Quarter: 2006Q4

REPORT INFORMATION
  Report Type: 
  Country: None (occurrence: None)
  Receive Date: 20061003
  Receipt Date: 20061003
  Transmission Date: 20070319
  Serious: Yes (Other)
  Sender: FDA-Public Use
  Company Number: 200614951EU

PATIENT
  Age: 52 Year
  Sex: Male

DRUGS (2)
  1. NICORETTE [Suspect]
     Indication: SMOKING CESSATION THERAPY
     Route: 002
     Dates: start: 19960101
  2. ROSUVASTATIN [Concomitant]

REACTIONS (3)
  - DEPENDENCE [None]
  - HYPERTENSION [None]
  - INTENTIONAL DRUG MISUSE [None]
